FAERS Safety Report 9175191 (Version 2)
Quarter: 2013Q1

REPORT INFORMATION
  Report Type: Spontaneous
  Country: US (occurrence: None)
  Receive Date: 20130315
  Receipt Date: 20130328
  Transmission Date: 20140127
  Serious: Yes (Disabling)
  Sender: FDA-Public Use
  Company Number: AUR-APL-2013-02278

PATIENT
  Age: 53 Year
  Sex: Female
  Weight: 79.38 kg

DRUGS (3)
  1. LEVOFLOXACIN [Suspect]
     Indication: SINUSITIS
     Dates: start: 20130214, end: 20130228
  2. SINGULAIR [Concomitant]
  3. CLARINEX (DESLORATADINE) [Concomitant]

REACTIONS (7)
  - Impaired work ability [None]
  - Musculoskeletal pain [None]
  - Arthralgia [None]
  - Arthralgia [None]
  - Abasia [None]
  - Influenza [None]
  - Pain in extremity [None]
